FAERS Safety Report 20427033 (Version 1)
Quarter: 2022Q1

REPORT INFORMATION
  Report Type: Report from Study
  Country: US (occurrence: US)
  Receive Date: 20220204
  Receipt Date: 20220204
  Transmission Date: 20220424
  Serious: No
  Sender: FDA-Public Use
  Company Number: US-EXELIXIS-CABO-21046543

PATIENT
  Age: 56 Year
  Sex: Male

DRUGS (2)
  1. CABOMETYX [Suspect]
     Active Substance: CABOZANTINIB S-MALATE
     Indication: Renal cancer
     Dosage: 40 MG, QD
     Route: 048
     Dates: start: 202011
  2. CABOMETYX [Suspect]
     Active Substance: CABOZANTINIB S-MALATE
     Dosage: 40 MG, QD
     Route: 048

REACTIONS (14)
  - Skin discolouration [Unknown]
  - Insomnia [Unknown]
  - Memory impairment [Unknown]
  - Lip pain [Unknown]
  - Glossodynia [Unknown]
  - Taste disorder [Unknown]
  - Diarrhoea [Recovering/Resolving]
  - Blood pressure increased [Unknown]
  - Arthralgia [Unknown]
  - Stomatitis [Unknown]
  - Muscle spasms [Unknown]
  - Palmar-plantar erythrodysaesthesia syndrome [Unknown]
  - Fatigue [Unknown]
  - Product dose omission issue [Unknown]

NARRATIVE: CASE EVENT DATE: 20201101
